FAERS Safety Report 4430500-X (Version None)
Quarter: 2004Q3

REPORT INFORMATION
  Report Type: 
  Country: None (occurrence: None)
  Receive Date: 20040721
  Receipt Date: 20031205
  Transmission Date: 20050211
  Serious: Yes (Hospitalization)
  Sender: FDA-Public Use
  Company Number: WAES 0312USA008923

PATIENT
  Age: 40 Year
  Sex: Female

DRUGS (4)
  1. VIOXX [Suspect]
     Indication: PAIN
     Dosage: 25 MG/DAILY/PO
     Route: 048
     Dates: start: 20031120, end: 20031126
  2. VIOXX [Suspect]
     Indication: SWELLING
     Dosage: 25 MG/DAILY/PO
     Route: 048
     Dates: start: 20031120, end: 20031126
  3. KEFLEX [Suspect]
     Dates: start: 20031126, end: 20031128
  4. KEFLEX [Suspect]
     Dates: start: 20031129, end: 20031129

REACTIONS (2)
  - HYPERSENSITIVITY [None]
  - URINARY TRACT INFECTION [None]
